FAERS Safety Report 8561220-8 (Version None)
Quarter: 2012Q3

REPORT INFORMATION
  Report Type: 
  Country: None (occurrence: None)
  Receive Date: 20120802
  Receipt Date: 20120724
  Transmission Date: 20120928
  Serious: Yes (Other)
  Sender: FDA-Public Use
  Company Number: CA-JNJFOC-20120713788

PATIENT
  Sex: Male
  Weight: 121.9 kg

DRUGS (3)
  1. IMURAN [Concomitant]
     Indication: COLITIS ULCERATIVE
     Route: 048
  2. DICITAL [Concomitant]
     Route: 065
  3. REMICADE [Suspect]
     Indication: COLITIS ULCERATIVE
     Route: 042
     Dates: start: 20101118

REACTIONS (2)
  - ROAD TRAFFIC ACCIDENT [None]
  - SOFT TISSUE INJURY [None]
